FAERS Safety Report 9270039 (Version 2)
Quarter: 2013Q2

REPORT INFORMATION
  Report Type: Spontaneous
  Country: US (occurrence: US)
  Receive Date: 20130503
  Receipt Date: 20130628
  Transmission Date: 20140414
  Serious: Yes (Death, Hospitalization)
  Sender: FDA-Public Use
  Company Number: US-INCYTE CORPORATION-2013IN000858

PATIENT
  Sex: Female

DRUGS (2)
  1. JAKAFI [Suspect]
     Indication: MYELOFIBROSIS
     Dosage: 50 MG, QD (TWO 25 MG TABLETS)
     Route: 048
     Dates: start: 20111206
  2. JAKAFI [Suspect]
     Dosage: 15 MG (THREE 5 MG TABLETS), BID
     Route: 048

REACTIONS (2)
  - Death [Fatal]
  - Renal impairment [Unknown]
